FAERS Safety Report 8770443 (Version 1)
Quarter: 2012Q4

REPORT INFORMATION
  Report Type: 
  Country: US (occurrence: US)
  Receive Date: 20120906
  Receipt Date: 20120906
  Transmission Date: 20130627
  Serious: Yes (Hospitalization)
  Sender: FDA-Public Use
  Company Number: US-BAYER-2012-091257

PATIENT
  Age: 47 Year
  Sex: Female

DRUGS (7)
  1. YAZ [Suspect]
  2. CLINDAMYCIN [Concomitant]
     Dosage: UNK UNK, BID
     Route: 061
     Dates: start: 2006, end: 20111122
  3. ALPRAZOLAM [Concomitant]
     Dosage: 0.25 mg, UNK
     Route: 048
     Dates: start: 20111024, end: 20111122
  4. LIPITOR [Concomitant]
  5. ALTACE [Concomitant]
  6. POTASSIUM [Concomitant]
  7. PERCOCET [Concomitant]

REACTIONS (2)
  - Acute myocardial infarction [None]
  - Pulmonary embolism [None]
